FAERS Safety Report 7968388-2 (Version None)
Quarter: 2011Q4

REPORT INFORMATION
  Report Type: 
  Country: None (occurrence: None)
  Receive Date: 20111207
  Receipt Date: 20111130
  Transmission Date: 20120403
  Serious: Yes (Hospitalization)
  Sender: FDA-Public Use
  Company Number: AUR-APL-2011-06033

PATIENT
  Age: 31 Year
  Sex: Male

DRUGS (2)
  1. ZOPICLONE (ZOPICLONE) [Suspect]
     Indication: DEPRESSION
     Dosage: (7.5 MG, 1 D), ORAL
     Route: 048
  2. MIRTAZAPINE [Suspect]
     Indication: DEPRESSION
     Dosage: (15 MG, 1 D), ORAL
     Route: 048

REACTIONS (1)
  - RHABDOMYOLYSIS [None]
